FAERS Safety Report 11116014 (Version 1)
Quarter: 2015Q2

REPORT INFORMATION
  Report Type: Spontaneous
  Country: US (occurrence: US)
  Receive Date: 20150515
  Receipt Date: 20150515
  Transmission Date: 20150821
  Serious: No
  Sender: FDA-Public Use
  Company Number: US-GLAXOSMITHKLINE-US2015062506

PATIENT
  Sex: Female
  Weight: 46 kg

DRUGS (1)
  1. EQUATE NICOTINE [Suspect]
     Active Substance: NICOTINE
     Indication: SMOKING CESSATION THERAPY
     Dosage: 14 MG, UNK
     Dates: start: 20150501, end: 20150507

REACTIONS (3)
  - Application site vesicles [Not Recovered/Not Resolved]
  - Skin reaction [Not Recovered/Not Resolved]
  - Application site urticaria [Not Recovered/Not Resolved]
